FAERS Safety Report 9746135 (Version 2)
Quarter: 2013Q4

REPORT INFORMATION
  Report Type: Spontaneous
  Country: US (occurrence: US)
  Receive Date: 20131211
  Receipt Date: 20131211
  Transmission Date: 20140711
  Serious: Yes (Other)
  Sender: FDA-Public Use
  Company Number: US-BMSGILMSD-2009-0024670

PATIENT
  Age: 39 Year
  Sex: Female
  Weight: 83.46 kg

DRUGS (5)
  1. ATRIPLA [Suspect]
     Indication: HIV INFECTION
     Route: 048
     Dates: start: 20090603, end: 20090715
  2. IBUPROFEN [Concomitant]
     Indication: ARTHRALGIA
  3. REGLAN [Concomitant]
     Indication: NAUSEA
  4. PRILOSEC [Concomitant]
     Indication: GASTROOESOPHAGEAL REFLUX DISEASE
  5. LORTAB [Concomitant]
     Indication: PAIN

REACTIONS (1)
  - Liver disorder [Recovered/Resolved]
